FAERS Safety Report 11318193 (Version 1)
Quarter: 2015Q3

REPORT INFORMATION
  Report Type: Spontaneous
  Country: US (occurrence: US)
  Receive Date: 20150728
  Receipt Date: 20150728
  Transmission Date: 20151125
  Serious: Yes (Other)
  Sender: FDA-Public Use
  Company Number: US-REGENERON PHARMACEUTICALS, INC.-2015-11817

PATIENT

DRUGS (2)
  1. EYLEA [Suspect]
     Active Substance: AFLIBERCEPT
     Indication: DIABETIC RETINAL OEDEMA
     Dosage: 2 MG MILLIGRAM(S), UNK, OS
     Route: 031
     Dates: start: 201503
  2. EYLEA [Suspect]
     Active Substance: AFLIBERCEPT
     Indication: RETINOPATHY PROLIFERATIVE

REACTIONS (2)
  - Retinopathy proliferative [Not Recovered/Not Resolved]
  - Diabetic retinal oedema [Not Recovered/Not Resolved]

NARRATIVE: CASE EVENT DATE: 2015
